FAERS Safety Report 8035664-7 (Version None)
Quarter: 2012Q1

REPORT INFORMATION
  Report Type: 
  Country: None (occurrence: None)
  Receive Date: 20120111
  Receipt Date: 20111214
  Transmission Date: 20120608
  Serious: Yes (Hospitalization, Other)
  Sender: FDA-Public Use
  Company Number: GB-B.I. PHARMACEUTICALS,INC./RIDGEFIELD-2011-UK-01308UK

PATIENT
  Age: 74 Year
  Sex: Male
  Weight: 79 kg

DRUGS (12)
  1. REPAGLINIDE [Concomitant]
     Dates: start: 20110816, end: 20111102
  2. CANDESARTAN CILEXETIL [Concomitant]
     Dates: start: 20111005, end: 20111102
  3. DIGOXIN [Concomitant]
     Dates: start: 20110726, end: 20110920
  4. FUROSEMIDE [Concomitant]
     Dates: start: 20111005
  5. TRAJENTA [Suspect]
     Dates: start: 20111103
  6. ALFACALCIDOL [Concomitant]
     Dates: start: 20111005
  7. CARVEDILOL [Concomitant]
     Dates: start: 20110726
  8. OPTIVE [Concomitant]
     Dates: start: 20111005
  9. PNEUMOCOCCAL POLYSACCHARIDE [Concomitant]
     Dates: start: 20111005, end: 20111005
  10. AMOXICILLIN AND CLAVULANATE POTASSIUM [Concomitant]
     Dates: start: 20111109, end: 20111116
  11. METFORMIN HCL [Concomitant]
     Dates: start: 20110816, end: 20110913
  12. GLICLAZIDE [Concomitant]
     Dates: start: 20111103

REACTIONS (2)
  - MYOCLONUS [None]
  - SIMPLE PARTIAL SEIZURES [None]
